FAERS Safety Report 13021868 (Version 2)
Quarter: 2016Q4

REPORT INFORMATION
  Report Type: Report from Study
  Country: US (occurrence: US)
  Receive Date: 20161213
  Receipt Date: 20161216
  Transmission Date: 20170207
  Serious: Yes (Other)
  Sender: FDA-Public Use
  Company Number: US-GILEAD-2016-0248498

PATIENT
  Age: 72 Year
  Sex: Female

DRUGS (5)
  1. AMBRISENTAN [Suspect]
     Active Substance: AMBRISENTAN
     Indication: DIASTOLIC DYSFUNCTION
  2. AMBRISENTAN [Suspect]
     Active Substance: AMBRISENTAN
     Indication: PULMONARY HYPERTENSION
     Dosage: 5 MG, QD
     Route: 065
  3. AMBRISENTAN [Suspect]
     Active Substance: AMBRISENTAN
     Indication: CONNECTIVE TISSUE DISORDER
  4. AMBRISENTAN [Suspect]
     Active Substance: AMBRISENTAN
     Indication: HYPOXIA
  5. AMBRISENTAN [Suspect]
     Active Substance: AMBRISENTAN
     Indication: SLEEP APNOEA SYNDROME

REACTIONS (1)
  - Cataract [Unknown]
